FAERS Safety Report 25284802 (Version 1)
Quarter: 2025Q2

REPORT INFORMATION
  Report Type: Spontaneous
  Country: JP (occurrence: JP)
  Receive Date: 20250508
  Receipt Date: 20250508
  Transmission Date: 20250717
  Serious: Yes (Hospitalization)
  Sender: PURDUE
  Company Number: JP-MLMSERVICE-20250429-PI491780-00049-1

PATIENT
  Age: 52 Year
  Sex: Male

DRUGS (5)
  1. OXYCODONE HYDROCHLORIDE [Suspect]
     Active Substance: OXYCODONE HYDROCHLORIDE
     Indication: Back pain
     Dosage: 40 MILLIGRAM, DAILY (SLOW RELEASE)
     Route: 065
  2. OXYCODONE HYDROCHLORIDE [Suspect]
     Active Substance: OXYCODONE HYDROCHLORIDE
     Route: 065
  3. AMITRIPTYLINE [Suspect]
     Active Substance: AMITRIPTYLINE
     Indication: Intercostal neuralgia
     Dosage: 25 MILLIGRAM, DAILY (ON DAY 26 OF HOSPITALIZATION)
     Route: 065
  4. AMITRIPTYLINE [Suspect]
     Active Substance: AMITRIPTYLINE
     Dosage: 10 MILLIGRAM, DAILY (DECREASED)
     Route: 065
  5. MIROGABALIN [Concomitant]
     Active Substance: MIROGABALIN
     Indication: Back pain
     Dosage: 30 MILLIGRAM, DAILY
     Route: 065

REACTIONS (1)
  - Serotonin syndrome [Recovered/Resolved]
